FAERS Safety Report 7496169-5 (Version None)
Quarter: 2011Q2

REPORT INFORMATION
  Report Type: 
  Country: None (occurrence: None)
  Receive Date: 20110523
  Receipt Date: 20110512
  Transmission Date: 20111010
  Serious: Yes (Hospitalization)
  Sender: FDA-Public Use
  Company Number: PHFR2011GB03027

PATIENT
  Sex: Male

DRUGS (2)
  1. CLOZARIL [Suspect]
     Indication: SCHIZOPHRENIA
     Dates: start: 20101214
  2. CLOZARIL [Suspect]
     Dosage: 325 MG, UNK
     Route: 048
     Dates: start: 20101223

REACTIONS (4)
  - TIBIA FRACTURE [None]
  - CONVULSION [None]
  - RED BLOOD CELL SEDIMENTATION RATE INCREASED [None]
  - ANKLE FRACTURE [None]
